FAERS Safety Report 9197543 (Version 1)
Quarter: 2013Q1

REPORT INFORMATION
  Report Type: Spontaneous
  Country: FR (occurrence: FR)
  Receive Date: 20130328
  Receipt Date: 20130328
  Transmission Date: 20140127
  Serious: Yes (Life-Threatening, Hospitalization)
  Sender: FDA-Public Use
  Company Number: FR-GLAXOSMITHKLINE-B0876001A

PATIENT
  Age: 64 Year
  Sex: Female

DRUGS (4)
  1. DEROXAT [Suspect]
     Indication: DEPRESSION
     Dosage: 10MG PER DAY
     Route: 048
     Dates: start: 20130215, end: 20130225
  2. PRADAXA [Suspect]
     Indication: PROPHYLAXIS
     Dosage: 110MG TWICE PER DAY
     Route: 048
     Dates: start: 20130215, end: 20130225
  3. APRANAX [Suspect]
     Indication: ANALGESIC THERAPY
     Dosage: 500MG TWICE PER DAY
     Route: 048
     Dates: start: 20130215, end: 20130225
  4. INEXIUM [Concomitant]
     Dosage: 20MG PER DAY
     Route: 048
     Dates: start: 20130215, end: 20130225

REACTIONS (2)
  - Shock haemorrhagic [Not Recovered/Not Resolved]
  - Post procedural haematoma [Not Recovered/Not Resolved]
